FAERS Safety Report 9314824 (Version 1)
Quarter: 2013Q2

REPORT INFORMATION
  Report Type: Spontaneous
  Country: BR (occurrence: BR)
  Receive Date: 20130529
  Receipt Date: 20130529
  Transmission Date: 20140414
  Serious: Yes (Hospitalization)
  Sender: FDA-Public Use
  Company Number: BR-ROCHE-1228976

PATIENT
  Sex: Male
  Weight: 123 kg

DRUGS (2)
  1. XENICAL [Suspect]
     Indication: OVERWEIGHT
     Dosage: AT LUNCH AND ANOTHER AT DINNER
     Route: 065
     Dates: start: 201204, end: 201207
  2. XENICAL [Suspect]
     Dosage: AT LUNCH AND ANOTHER AT DINNER
     Route: 065
     Dates: start: 20130515

REACTIONS (3)
  - Ligament rupture [Not Recovered/Not Resolved]
  - Flatulence [Recovered/Resolved]
  - Drug administration error [Unknown]
